FAERS Safety Report 22517930 (Version 1)
Quarter: 2023Q2

REPORT INFORMATION
  Report Type: Spontaneous
  Country: US (occurrence: US)
  Receive Date: 20230605
  Receipt Date: 20230605
  Transmission Date: 20230721
  Serious: Yes (Other)
  Sender: FDA-Public Use
  Company Number: US-MLMSERVICE-20230522-4297018-1

PATIENT
  Age: 66 Year
  Sex: Female

DRUGS (2)
  1. CISPLATIN [Suspect]
     Active Substance: CISPLATIN
     Indication: Uterine cancer
  2. GEMCITABINE [Suspect]
     Active Substance: GEMCITABINE
     Indication: Uterine cancer

REACTIONS (2)
  - Cytomegalovirus oesophagitis [Unknown]
  - Off label use [Unknown]
